FAERS Safety Report 9674445 (Version 2)
Quarter: 2013Q4

REPORT INFORMATION
  Report Type: Spontaneous
  Country: US (occurrence: US)
  Receive Date: 20131107
  Receipt Date: 20131222
  Transmission Date: 20140711
  Serious: No
  Sender: FDA-Public Use
  Company Number: US-009507513-1311USA001763

PATIENT
  Age: 53 Year
  Sex: Male
  Weight: 111.11 kg

DRUGS (4)
  1. SAPHRIS [Suspect]
     Indication: PARANOIA
     Dosage: 5 MG, BID
     Route: 060
     Dates: start: 20131018, end: 20131025
  2. SAPHRIS [Suspect]
     Indication: MOOD ALTERED
  3. ABILIFY [Concomitant]
     Indication: PARANOIA
     Dosage: START FROM MORE THAN 5 YEARS AGO, 15 MG DAILY
     Route: 048
  4. LORAZEPAM [Concomitant]
     Indication: ANXIETY
     Dosage: START FROM MORE THAN 5 YEARS AGO, 0.5 MG DAILY
     Route: 048

REACTIONS (1)
  - Glossodynia [Recovered/Resolved]
